FAERS Safety Report 7353594-0 (Version None)
Quarter: 2011Q1

REPORT INFORMATION
  Report Type: 
  Country: None (occurrence: None)
  Receive Date: 20110315
  Receipt Date: 20110310
  Transmission Date: 20110831
  Serious: Yes (Other)
  Sender: FDA-Public Use
  Company Number: BR-PFIZER INC-2011053100

PATIENT
  Age: 63 Year
  Sex: Male

DRUGS (1)
  1. VIAGRA [Suspect]
     Indication: URINARY INCONTINENCE
     Dosage: 2X/WEEK
     Route: 048

REACTIONS (5)
  - ERECTILE DYSFUNCTION [None]
  - LIVER INJURY [None]
  - HEADACHE [None]
  - RENAL INJURY [None]
  - DECREASED APPETITE [None]
